FAERS Safety Report 10221636 (Version 1)
Quarter: 2014Q2

REPORT INFORMATION
  Report Type: Spontaneous
  Country: US (occurrence: US)
  Receive Date: 20140606
  Receipt Date: 20140606
  Transmission Date: 20141212
  Serious: Yes (Hospitalization, Other)
  Sender: FDA-Public Use
  Company Number: US-JNJFOC-20140603740

PATIENT
  Sex: Female

DRUGS (2)
  1. DURAGESIC [Suspect]
     Indication: BACK INJURY
     Route: 062
     Dates: end: 2014
  2. XANAX [Concomitant]
     Indication: ANXIETY
     Route: 065

REACTIONS (6)
  - Withdrawal syndrome [Unknown]
  - Neoplasm malignant [Not Recovered/Not Resolved]
  - Cyanosis [Recovered/Resolved]
  - Respiratory arrest [Recovered/Resolved]
  - Speech disorder [Recovered/Resolved]
  - Coma [Recovered/Resolved]
